FAERS Safety Report 7328613-8 (Version None)
Quarter: 2011Q1

REPORT INFORMATION
  Report Type: 
  Country: None (occurrence: None)
  Receive Date: 20110225
  Receipt Date: 20110225
  Transmission Date: 20110831
  Serious: Yes (Other)
  Sender: FDA-Public Use
  Company Number: None

PATIENT
  Age: 27 Year
  Sex: Female
  Weight: 90.7194 kg

DRUGS (2)
  1. YAZ [Concomitant]
  2. TOPIRAMATE [Suspect]
     Indication: MIGRAINE
     Dosage: 100MG HS PO
     Route: 048

REACTIONS (1)
  - TREMOR [None]
